FAERS Safety Report 7451195-7 (Version None)
Quarter: 2011Q2

REPORT INFORMATION
  Report Type: 
  Country: None (occurrence: None)
  Receive Date: 20110502
  Receipt Date: 20110425
  Transmission Date: 20111010
  Serious: Yes (Death, Hospitalization)
  Sender: FDA-Public Use
  Company Number: PHHY2008US37199

PATIENT
  Sex: Male
  Weight: 96.3 kg

DRUGS (6)
  1. MILRINONE [Concomitant]
  2. AMIODARONE [Concomitant]
  3. ESMOLOL [Concomitant]
  4. EXJADE [Suspect]
     Dosage: UNK
     Route: 048
  5. NOREPINEPHRINE BITARTRATE [Concomitant]
  6. DOPAMINE HCL [Concomitant]

REACTIONS (22)
  - RENAL FAILURE ACUTE [None]
  - NEUTROPENIA [None]
  - THROMBOCYTOPENIA [None]
  - BACTERIAL SEPSIS [None]
  - MULTI-ORGAN FAILURE [None]
  - ACUTE LUNG INJURY [None]
  - GLYCOSURIA [None]
  - ANAEMIA [None]
  - SUPRAVENTRICULAR TACHYCARDIA [None]
  - HYPOTENSION [None]
  - SEPTIC SHOCK [None]
  - METABOLIC ACIDOSIS [None]
  - PYREXIA [None]
  - BRAIN HERNIATION [None]
  - DISSEMINATED INTRAVASCULAR COAGULATION [None]
  - CARDIAC FAILURE [None]
  - HYPERNATRAEMIA [None]
  - RETINAL HAEMORRHAGE [None]
  - ALOPECIA [None]
  - BRAIN OEDEMA [None]
  - WHITE BLOOD CELL COUNT DECREASED [None]
  - POLYURIA [None]
